FAERS Safety Report 10366282 (Version 1)
Quarter: 2014Q3

REPORT INFORMATION
  Report Type: Spontaneous
  Country: DE (occurrence: DE)
  Receive Date: 20140806
  Receipt Date: 20140806
  Transmission Date: 20150326
  Serious: Yes (Other)
  Sender: FDA-Public Use
  Company Number: DE-PFIZER INC-2014213270

PATIENT
  Sex: Male

DRUGS (1)
  1. BENEFIX [Suspect]
     Active Substance: COAGULATION FACTOR IX RECOMBINANT HUMAN\ISOPROPYL ALCOHOL
     Indication: HAEMOPHILIA
     Dosage: 250 IU, DAILY

REACTIONS (5)
  - Chest discomfort [Unknown]
  - Wheezing [Unknown]
  - Hypersensitivity [Unknown]
  - Pharyngeal oedema [Unknown]
  - Rash [Unknown]

NARRATIVE: CASE EVENT DATE: 20140729
